FAERS Safety Report 24194308 (Version 1)
Quarter: 2024Q3

REPORT INFORMATION
  Report Type: Spontaneous
  Country: RU (occurrence: RU)
  Receive Date: 20240809
  Receipt Date: 20240809
  Transmission Date: 20241016
  Serious: Yes (Other)
  Sender: DAIICHI
  Company Number: RU-AstraZeneca-2024A177122

PATIENT
  Age: 45 Year
  Sex: Female

DRUGS (5)
  1. TRASTUZUMAB DERUXTECAN [Suspect]
     Active Substance: TRASTUZUMAB DERUXTECAN
     Indication: Breast cancer
     Dosage: 5.4 MG/KG, ONCE EVERY 3 WK, A TOTAL OF 36 CYCLES
     Route: 042
     Dates: start: 202012, end: 202301
  2. FULVESTRANT [Suspect]
     Active Substance: FULVESTRANT
     Indication: Breast cancer
     Dosage: UNK
     Route: 030
     Dates: start: 201810
  3. DOCETAXEL [Concomitant]
     Active Substance: DOCETAXEL\DOCETAXEL ANHYDROUS
     Indication: Breast cancer
     Dosage: UNK
     Route: 065
  4. DEXAMETHASONE [Concomitant]
     Active Substance: DEXAMETHASONE
     Indication: Breast cancer
     Dosage: UNK
     Route: 065
  5. ONDANSETRON [Concomitant]
     Active Substance: ONDANSETRON
     Indication: Breast cancer
     Dosage: UNK
     Route: 065

REACTIONS (8)
  - Metastasis [Unknown]
  - Hydrothorax [Unknown]
  - Hepatic failure [Unknown]
  - Malignant neoplasm progression [Unknown]
  - Thrombocytopenia [Unknown]
  - Dyspnoea [Unknown]
  - Nausea [Recovered/Resolved]
  - Alopecia [Unknown]

NARRATIVE: CASE EVENT DATE: 20190901
